FAERS Safety Report 6752905-4 (Version None)
Quarter: 2010Q2

REPORT INFORMATION
  Report Type: 
  Country: None (occurrence: None)
  Receive Date: 20100602
  Receipt Date: 20100602
  Transmission Date: 20101027
  Serious: Yes (Other)
  Sender: FDA-Public Use
  Company Number: None

PATIENT
  Sex: Female
  Weight: 131 kg

DRUGS (1)
  1. LEVAQUIN [Suspect]
     Indication: PNEUMONIA
     Dates: start: 20100522, end: 20100523

REACTIONS (1)
  - STEVENS-JOHNSON SYNDROME [None]
